FAERS Safety Report 24558430 (Version 1)
Quarter: 2024Q4

REPORT INFORMATION
  Report Type: Spontaneous
  Country: KR (occurrence: KR)
  Receive Date: 20241029
  Receipt Date: 20241029
  Transmission Date: 20250114
  Serious: Yes (Hospitalization)
  Sender: JOHNSON AND JOHNSON
  Company Number: KR-JNJFOC-20241074835

PATIENT
  Age: 53 Year
  Sex: Female
  Weight: 51 kg

DRUGS (2)
  1. TRABECTEDIN [Suspect]
     Active Substance: TRABECTEDIN
     Indication: Leiomyosarcoma recurrent
     Dosage: 1 CYCLE
     Route: 042
     Dates: start: 20241007, end: 20241008
  2. GRANULOCYTE COLONY-STIMULATING FACTOR NOS [Concomitant]
     Active Substance: GRANULOCYTE COLONY-STIMULATING FACTOR NOS

REACTIONS (1)
  - Toxic leukoencephalopathy [Unknown]
